FAERS Safety Report 9069704 (Version 1)
Quarter: 2013Q1

REPORT INFORMATION
  Report Type: Spontaneous
  Country: DE (occurrence: DE)
  Receive Date: 20130215
  Receipt Date: 20130215
  Transmission Date: 20140127
  Serious: Yes (Other)
  Sender: FDA-Public Use
  Company Number: DE-TEVA-384810GER

PATIENT
  Age: 5 Decade
  Sex: Female

DRUGS (2)
  1. IBU-RATIOPHARM 400 MG FILMTABLETTEN [Suspect]
     Indication: BACK PAIN
     Route: 048
  2. VALPROIC ACID [Concomitant]

REACTIONS (2)
  - Epilepsy [Unknown]
  - Condition aggravated [None]
